FAERS Safety Report 7688422-7 (Version None)
Quarter: 2011Q3

REPORT INFORMATION
  Report Type: 
  Country: None (occurrence: None)
  Receive Date: 20110817
  Receipt Date: 20110815
  Transmission Date: 20111222
  Serious: Yes (Hospitalization)
  Sender: FDA-Public Use
  Company Number: US-PFIZER INC-2011187848

PATIENT
  Age: 53 Year
  Sex: Female
  Weight: 63 kg

DRUGS (1)
  1. DILANTIN-125 [Suspect]
     Indication: CONVULSION
     Dosage: UNKNOWN DOSE TWO TIMES A DAY
     Route: 048

REACTIONS (6)
  - DRUG LEVEL INCREASED [None]
  - GAIT DISTURBANCE [None]
  - ABDOMINAL PAIN UPPER [None]
  - FATIGUE [None]
  - HYPERSOMNIA [None]
  - PRODUCT TASTE ABNORMAL [None]
